FAERS Safety Report 8840596 (Version 1)
Quarter: 2012Q4

REPORT INFORMATION
  Report Type: Report from Study
  Country: US (occurrence: US)
  Receive Date: 20121015
  Receipt Date: 20121015
  Transmission Date: 20130627
  Serious: Yes (Other)
  Sender: FDA-Public Use
  Company Number: US-GILEAD-2012-0062951

PATIENT
  Age: 35 Year
  Sex: Female

DRUGS (5)
  1. EFAVIRENZ/EMTRICITABINE/TENOFOVIR DISOPROXIL FUMARATE [Suspect]
     Indication: HIV INFECTION
     Dosage: 1 DF, QD
     Route: 048
  2. ATORVASTATIN [Concomitant]
  3. COMBIVIR [Concomitant]
     Indication: HIV INFECTION
  4. NELFINAVIR [Concomitant]
     Indication: HIV INFECTION
  5. INSULIN [Concomitant]

REACTIONS (2)
  - Gestational diabetes [Unknown]
  - Pregnancy [Recovered/Resolved]
